FAERS Safety Report 7745903-5 (Version None)
Quarter: 2011Q3

REPORT INFORMATION
  Report Type: 
  Country: None (occurrence: None)
  Receive Date: 20110913
  Receipt Date: 20110908
  Transmission Date: 20111222
  Serious: No
  Sender: FDA-Public Use
  Company Number: US-PFIZER INC-2011211517

PATIENT
  Sex: Male
  Weight: 43.991 kg

DRUGS (3)
  1. ADVIL LIQUI-GELS [Suspect]
     Indication: PYREXIA
  2. DOXYCYCLINE [Concomitant]
     Dosage: UNK
  3. ADVIL LIQUI-GELS [Suspect]
     Indication: VIRAL INFECTION
     Dosage: UNK, AS NEEDED
     Route: 048
     Dates: start: 20110901, end: 20110901

REACTIONS (1)
  - DRUG INEFFECTIVE [None]
